FAERS Safety Report 4973733-6 (Version None)
Quarter: 2006Q2

REPORT INFORMATION
  Report Type: 
  Country: None (occurrence: None)
  Receive Date: 20060414
  Receipt Date: 20050513
  Transmission Date: 20061013
  Serious: Yes (Hospitalization)
  Sender: FDA-Public Use
  Company Number: US-MERCK-0505USA01808

PATIENT
  Age: 64 Year
  Sex: Male

DRUGS (4)
  1. VIOXX [Suspect]
     Route: 048
  2. NITROGLYCERIN [Concomitant]
     Route: 065
  3. PROZAC [Concomitant]
     Route: 065
  4. SINGULAIR [Concomitant]
     Route: 065

REACTIONS (14)
  - ANGINA PECTORIS [None]
  - ASTHENIA [None]
  - CARDIAC DISORDER [None]
  - CARDIOMEGALY [None]
  - CHEST PAIN [None]
  - DYSPNOEA [None]
  - FALL [None]
  - GASTROOESOPHAGEAL REFLUX DISEASE [None]
  - HYPERCHOLESTEROLAEMIA [None]
  - MYELOPATHY [None]
  - MYOCARDIAL INFARCTION [None]
  - NAUSEA [None]
  - PALPITATIONS [None]
  - RADICULOPATHY [None]
